FAERS Safety Report 13135635 (Version 2)
Quarter: 2017Q1

REPORT INFORMATION
  Report Type: Report from Study
  Country: US (occurrence: US)
  Receive Date: 20170120
  Receipt Date: 20170215
  Transmission Date: 20170428
  Serious: Yes (Hospitalization, Other)
  Sender: FDA-Public Use
  Company Number: US-GILEAD-2017-0252803

PATIENT
  Age: 55 Year
  Sex: Female

DRUGS (4)
  1. WARFARIN [Concomitant]
     Active Substance: WARFARIN
  2. OXYGEN. [Concomitant]
     Active Substance: OXYGEN
  3. AMBRISENTAN [Suspect]
     Active Substance: AMBRISENTAN
     Indication: PULMONARY HYPERTENSION
  4. AMBRISENTAN [Suspect]
     Active Substance: AMBRISENTAN
     Indication: PULMONARY EMBOLISM
     Dosage: 10 MG, QD
     Route: 048
     Dates: start: 20150824, end: 20170113

REACTIONS (10)
  - Oesophageal candidiasis [Unknown]
  - Abdominal pain [Unknown]
  - Chest pain [Unknown]
  - Productive cough [Unknown]
  - Chronic obstructive pulmonary disease [Unknown]
  - Dyspnoea [Unknown]
  - Back pain [Unknown]
  - Pneumonia [Unknown]
  - Wheezing [Unknown]
  - Pyrexia [Unknown]

NARRATIVE: CASE EVENT DATE: 20170103
